FAERS Safety Report 7903498-7 (Version None)
Quarter: 2011Q4

REPORT INFORMATION
  Report Type: 
  Country: None (occurrence: None)
  Receive Date: 20111109
  Receipt Date: 20111103
  Transmission Date: 20120403
  Serious: Yes (Hospitalization)
  Sender: FDA-Public Use
  Company Number: US-SANOFI-AVENTIS-2011SA072415

PATIENT
  Sex: Female

DRUGS (5)
  1. LANTUS [Suspect]
     Route: 058
     Dates: start: 20090101
  2. ALL OTHER THERAPEUTIC PRODUCTS [Concomitant]
  3. HUMALOG [Concomitant]
     Dosage: DOSE:30 UNIT(S)
  4. SOLOSTAR [Suspect]
     Indication: DIABETES MELLITUS
     Dates: start: 20090101
  5. LANTUS [Suspect]
     Indication: DIABETES MELLITUS
     Dosage: DOSE:30 UNIT(S)
     Route: 058

REACTIONS (8)
  - BLOOD GLUCOSE INCREASED [None]
  - INJECTION SITE REACTION [None]
  - HOSPITALISATION [None]
  - PRODUCT QUALITY ISSUE [None]
  - DRUG INEFFECTIVE [None]
  - INJECTION SITE SWELLING [None]
  - INJECTION SITE INFLAMMATION [None]
  - INJECTION SITE PAIN [None]
